FAERS Safety Report 24158596 (Version 5)
Quarter: 2024Q4

REPORT INFORMATION
  Report Type: Report from Study
  Country: BR (occurrence: BR)
  Receive Date: 20240731
  Receipt Date: 20241227
  Transmission Date: 20250115
  Serious: Yes (Hospitalization)
  Sender: PFIZER
  Company Number: BR-PFIZER INC-PV202400098506

PATIENT
  Age: 71 Year
  Sex: Female
  Weight: 53.1 kg

DRUGS (6)
  1. RUXIENCE [Suspect]
     Active Substance: RITUXIMAB-PVVR
     Indication: B-cell lymphoma
     Dosage: 375 MG/M2, PER PROTOCOL, CYCLE 1/INDUCTION, DAY 1
     Route: 042
     Dates: start: 20240709, end: 20240709
  2. ACETAMINOPHEN [Concomitant]
     Active Substance: ACETAMINOPHEN
     Indication: Abdominal pain upper
     Dosage: 30 MG, 8/8 HOURS, ROUTE: VO
     Dates: start: 20240609
  3. BUPRENORPHINE [Concomitant]
     Active Substance: BUPRENORPHINE
     Indication: Abdominal pain upper
     Dosage: 10 MG, ONCE A WEEK, ROUTE: DERMAL
     Dates: start: 20240609
  4. SIMETHICONE (DIMETHICONE) [Concomitant]
     Active Substance: DIMETHICONE
     Indication: Abdominal distension
     Dosage: 40 DROPS, 8/8 HOURS, ROUTE: VO
     Dates: start: 20240610
  5. ONDANSETRON HYDROCHLORIDE [Concomitant]
     Active Substance: ONDANSETRON HYDROCHLORIDE
     Indication: Nausea
     Dosage: 8 MG, 8/8 HOURS, ROUTE: VO
     Dates: start: 20240610
  6. OMEPRAZOLE [Concomitant]
     Active Substance: OMEPRAZOLE
     Indication: Prophylaxis
     Dosage: 20 MG, 2X/DAY, ROUTE: VO
     Dates: start: 20240710

REACTIONS (2)
  - Hypokalaemia [Recovered/Resolved]
  - Renal vein thrombosis [Recovered/Resolved]

NARRATIVE: CASE EVENT DATE: 20240713
